FAERS Safety Report 4697235-X (Version None)
Quarter: 2005Q2

REPORT INFORMATION
  Report Type: 
  Country: None (occurrence: None)
  Receive Date: 20050622
  Receipt Date: 20050610
  Transmission Date: 20051028
  Serious: Yes (Other)
  Sender: FDA-Public Use
  Company Number: FR-GLAXOSMITHKLINE-B0384662A

PATIENT
  Sex: Male

DRUGS (4)
  1. ONDANSETRON [Suspect]
     Indication: NAUSEA
     Route: 048
  2. ETHAMBUTOL HCL [Concomitant]
     Indication: TUBERCULOSIS
     Route: 065
     Dates: start: 20050201
  3. PARA-AMINOSALICYLIC [Concomitant]
     Indication: TUBERCULOSIS
     Dosage: 2G TWICE PER DAY
     Route: 065
     Dates: start: 20050201
  4. CAPREOMYCIN [Concomitant]
     Indication: TUBERCULOSIS
     Route: 065
     Dates: start: 20050201

REACTIONS (2)
  - ATRIOVENTRICULAR BLOCK [None]
  - LOSS OF CONSCIOUSNESS [None]
